FAERS Safety Report 18577675 (Version 1)
Quarter: 2020Q4

REPORT INFORMATION
  Report Type: Other
  Country: KR (occurrence: KR)
  Receive Date: 20201203
  Receipt Date: 20201203
  Transmission Date: 20210114
  Serious: Yes (Death, Life-Threatening, Hospitalization)
  Sender: FDA-Public Use
  Company Number: KR-NOSTRUM LABORATORIES, INC.-2096668

PATIENT

DRUGS (1)
  1. CARBAMAZEPINE EXTENDED-RELEASE [Suspect]
     Active Substance: CARBAMAZEPINE
     Indication: PRODUCT USED FOR UNKNOWN INDICATION
     Route: 048

REACTIONS (1)
  - Drug reaction with eosinophilia and systemic symptoms [Fatal]
